FAERS Safety Report 5360478-6 (Version None)
Quarter: 2007Q2

REPORT INFORMATION
  Report Type: 
  Country: None (occurrence: None)
  Receive Date: 20070618
  Receipt Date: 20070614
  Transmission Date: 20071010
  Serious: Yes (Other)
  Sender: FDA-Public Use
  Company Number: A0656652A

PATIENT
  Age: 59 Year
  Sex: Male

DRUGS (4)
  1. AVANDIA [Suspect]
     Indication: DRUG USE FOR UNKNOWN INDICATION
     Dosage: 4MG UNKNOWN
     Route: 065
  2. DIABETA [Concomitant]
     Dosage: 2.5MG TWICE PER DAY
  3. MONOPRIL [Concomitant]
  4. CADUET [Concomitant]

REACTIONS (2)
  - EYE DISORDER [None]
  - HYPERTENSIVE CRISIS [None]
